FAERS Safety Report 15099508 (Version 14)
Quarter: 2020Q3

REPORT INFORMATION
  Report Type: Spontaneous
  Country: US (occurrence: US)
  Receive Date: 20180702
  Receipt Date: 20200723
  Transmission Date: 20201102
  Serious: Yes (Death, Hospitalization)
  Sender: FDA-Public Use
  Company Number: US-ACTELION-A-NJ2018-174558

PATIENT
  Age: 77 Year
  Sex: Female
  Weight: 53.97 kg

DRUGS (8)
  1. ADEMPAS [Concomitant]
     Active Substance: RIOCIGUAT
  2. DILTIAZEM. [Concomitant]
     Active Substance: DILTIAZEM
  3. OPSUMIT [Suspect]
     Active Substance: MACITENTAN
     Dosage: 10 MG, QD
     Route: 048
  4. AMBIEN [Concomitant]
     Active Substance: ZOLPIDEM TARTRATE
  5. OPSUMIT [Suspect]
     Active Substance: MACITENTAN
     Indication: PULMONARY HYPERTENSION
     Dosage: 10 MG, QD
     Route: 048
     Dates: start: 20160915
  6. ADCIRCA [Concomitant]
     Active Substance: TADALAFIL
     Dosage: 20 MG, QD
     Route: 048
     Dates: start: 20151215
  7. ADCIRCA [Concomitant]
     Active Substance: TADALAFIL
     Dosage: 40 MG, QPM
     Route: 048
  8. COREG [Concomitant]
     Active Substance: CARVEDILOL

REACTIONS (17)
  - Medical procedure [Unknown]
  - Cardiac failure congestive [Not Recovered/Not Resolved]
  - Lacrimation increased [Unknown]
  - Weight decreased [Unknown]
  - Atrial fibrillation [Unknown]
  - Back pain [Recovering/Resolving]
  - Fatigue [Not Recovered/Not Resolved]
  - Anaemia [Not Recovered/Not Resolved]
  - Hypersensitivity [Unknown]
  - Insomnia [Not Recovered/Not Resolved]
  - Productive cough [Not Recovered/Not Resolved]
  - Oedema peripheral [Unknown]
  - Chronic obstructive pulmonary disease [Fatal]
  - Hypoacusis [Unknown]
  - Emergency care [Unknown]
  - Pneumonia [Recovered/Resolved]
  - Illness [Recovered/Resolved]

NARRATIVE: CASE EVENT DATE: 20180818
